FAERS Safety Report 9688351 (Version 2)
Quarter: 2013Q4

REPORT INFORMATION
  Report Type: Report from Study
  Country: US (occurrence: US)
  Receive Date: 20131114
  Receipt Date: 20131119
  Transmission Date: 20140711
  Serious: Yes (Death, Hospitalization)
  Sender: FDA-Public Use
  Company Number: PHEH2013US023680

PATIENT
  Age: 67 Year
  Sex: Male
  Weight: 77.2 kg

DRUGS (6)
  1. EXJADE [Suspect]
     Indication: MYELODYSPLASTIC SYNDROME
     Dosage: 500 MG, QD
     Route: 048
  2. AMIODARONE [Concomitant]
     Dosage: 200 MG, DAILY
     Route: 048
  3. GABAPENTIN [Concomitant]
     Dosage: 100 MG, TID
     Route: 048
  4. METOPROLOL [Concomitant]
     Dosage: 25 MG (HALF TAB, BID)
     Route: 048
  5. MIRTAZAPINE [Concomitant]
     Dosage: 15 MG, UNK
     Route: 048
  6. MORPHINE SULPHATE [Concomitant]
     Dosage: 15 MG, PER DAY
     Route: 048

REACTIONS (9)
  - Death [Fatal]
  - Endocarditis [Unknown]
  - Embolic stroke [Unknown]
  - Enterococcal bacteraemia [Unknown]
  - Back pain [Unknown]
  - Malnutrition [Unknown]
  - Asthenia [Unknown]
  - Mental status changes [Unknown]
  - Decubitus ulcer [Unknown]
